FAERS Safety Report 15429045 (Version 2)
Quarter: 2018Q3

REPORT INFORMATION
  Report Type: Spontaneous
  Country: US (occurrence: US)
  Receive Date: 20180926
  Receipt Date: 20180928
  Transmission Date: 20181010
  Serious: No
  Sender: FDA-Public Use
  Company Number: US-PFIZER INC-2018387017

PATIENT
  Age: 14 Year
  Sex: Male

DRUGS (2)
  1. SERTRALINE HCL [Suspect]
     Active Substance: SERTRALINE HYDROCHLORIDE
     Indication: GENERALISED ANXIETY DISORDER
  2. SERTRALINE HCL [Suspect]
     Active Substance: SERTRALINE HYDROCHLORIDE
     Indication: OBSESSIVE-COMPULSIVE DISORDER
     Dosage: 37.5 MG (REPORTED AS 1.5 TABLETS= 25 MG TABLET AND 1.25 MG), , 2X/DAY
     Route: 048

REACTIONS (2)
  - Drug effect incomplete [Unknown]
  - Metabolic disorder [Unknown]
